FAERS Safety Report 22386952 (Version 1)
Quarter: 2023Q2

REPORT INFORMATION
  Report Type: Spontaneous
  Country: CN (occurrence: None)
  Receive Date: 20230531
  Receipt Date: 20230531
  Transmission Date: 20230722
  Serious: Yes (Hospitalization)
  Sender: FDA-Public Use
  Company Number: CN-ROCHE-3358253

PATIENT
  Age: 58 Year
  Sex: Female
  Weight: 45 kg

DRUGS (3)
  1. PACLITAXEL [Suspect]
     Active Substance: PACLITAXEL
     Indication: Fallopian tube cancer
     Route: 041
     Dates: start: 20230406
  2. AVASTIN [Suspect]
     Active Substance: BEVACIZUMAB
     Indication: Fallopian tube cancer
     Route: 041
     Dates: start: 20230406
  3. CISPLATIN [Suspect]
     Active Substance: CISPLATIN
     Indication: Fallopian tube cancer
     Route: 041
     Dates: start: 20230406

REACTIONS (1)
  - Myelosuppression [Recovering/Resolving]

NARRATIVE: CASE EVENT DATE: 20230412
